FAERS Safety Report 6330584-8 (Version None)
Quarter: 2009Q3

REPORT INFORMATION
  Report Type: 
  Country: None (occurrence: None)
  Receive Date: 20090827
  Receipt Date: 20090820
  Transmission Date: 20100115
  Serious: Yes (Hospitalization, Other)
  Sender: FDA-Public Use
  Company Number: BR-ABBOTT-09P-020-0586264-00

PATIENT
  Sex: Female
  Weight: 35 kg

DRUGS (2)
  1. DEPAKOTE [Suspect]
     Indication: CEREBRAL PALSY
     Route: 048
  2. SONEBON [Concomitant]
     Indication: CEREBRAL PALSY
     Route: 048

REACTIONS (2)
  - CONVULSION [None]
  - DRUG TOXICITY [None]
